FAERS Safety Report 8742182 (Version 3)
Quarter: 2012Q4

REPORT INFORMATION
  Report Type: 
  Country: DE (occurrence: DE)
  Receive Date: 20120824
  Receipt Date: 20120904
  Transmission Date: 20130627
  Serious: Yes (Other)
  Sender: FDA-Public Use
  Company Number: PHHY2012DE072349

PATIENT
  Sex: Female

DRUGS (5)
  1. LEPONEX [Suspect]
     Indication: PSYCHOTIC DISORDER
     Dosage: 50 mg, QD
  2. HALDOL [Concomitant]
     Dosage: 10 mg, QD
     Route: 048
  3. TAXILAN [Concomitant]
     Dosage: 800 mg, QD
     Route: 048
  4. TAVANIC [Concomitant]
     Dosage: 500 mg, QD
     Route: 048
  5. PANTOPRAZOLE [Concomitant]
     Indication: GASTROOESOPHAGEAL REFLUX DISEASE
     Dosage: 80 mg, QD
     Route: 048
     Dates: start: 201208

REACTIONS (3)
  - Anaemia [Recovering/Resolving]
  - Gastric disorder [Recovering/Resolving]
  - Gastrooesophageal reflux disease [Recovering/Resolving]
